FAERS Safety Report 9009826 (Version 1)
Quarter: 2013Q1

REPORT INFORMATION
  Report Type: Spontaneous
  Country: US (occurrence: US)
  Receive Date: 20130110
  Receipt Date: 20130110
  Transmission Date: 20140127
  Serious: No
  Sender: FDA-Public Use
  Company Number: US-009507513-1301USA003225

PATIENT
  Sex: Male

DRUGS (4)
  1. PEG-INTRON [Suspect]
     Indication: HEPATITIS C
     Dosage: UNK
     Dates: start: 20070101, end: 20071101
  2. PEG-INTRON [Suspect]
     Dosage: UNK
     Dates: start: 20130105
  3. RIBAVIRIN [Suspect]
     Indication: HEPATITIS C
     Dosage: UNK
     Dates: start: 20070101, end: 20071101
  4. RIBAVIRIN [Suspect]
     Dosage: UNK
     Dates: start: 20130105

REACTIONS (1)
  - Therapeutic response decreased [Unknown]
